FAERS Safety Report 5063386-3 (Version None)
Quarter: 2006Q3

REPORT INFORMATION
  Report Type: 
  Country: None (occurrence: None)
  Receive Date: 20060727
  Receipt Date: 20060419
  Transmission Date: 20061208
  Serious: Yes (Other)
  Sender: FDA-Public Use
  Company Number: PHEH2006US05160

PATIENT
  Age: 88 Year
  Sex: Female
  Weight: 64.399 kg

DRUGS (1)
  1. DIOVAN [Suspect]
     Indication: HYPERTENSION
     Dosage: 80 MG, QD
     Route: 048
     Dates: start: 20051101, end: 20060407

REACTIONS (2)
  - DYSPNOEA [None]
  - TACHYCARDIA [None]
